FAERS Safety Report 5089515-3 (Version None)
Quarter: 2006Q3

REPORT INFORMATION
  Report Type: 
  Country: None (occurrence: None)
  Receive Date: 20060822
  Receipt Date: 20060801
  Transmission Date: 20061208
  Serious: Yes (Hospitalization)
  Sender: FDA-Public Use
  Company Number: US200607002476

PATIENT
  Age: 82 Year
  Sex: Female
  Weight: 68 kg

DRUGS (17)
  1. FORTEO [Suspect]
     Indication: OSTEOPOROSIS
     Dosage: SEE IMAGE
     Dates: start: 20050601, end: 20060101
  2. FORTEO [Suspect]
     Indication: OSTEOPOROSIS
     Dosage: SEE IMAGE
     Dates: start: 20060101
  3. FORTEO PEN          (FORTEO PEN) [Concomitant]
  4. ACCUPRIL [Concomitant]
  5. NORVASC [Concomitant]
  6. ASCORBIC ACID [Concomitant]
  7. CYANOCOBALAMIN [Concomitant]
  8. COLACE          (DOCUSATE SODIUM) [Concomitant]
  9. CALCIUM WITH VITAMIN D [Concomitant]
  10. VALIUM [Concomitant]
  11. DARVOCET-N (PROPOXYPHENE NAPSTLATE) [Concomitant]
  12. ACETAMINOPHEN [Concomitant]
  13. HEPARIN SODIUM [Concomitant]
  14. ASA                                      (ASPIRIN (ACETYSALISCYLIC ACI [Concomitant]
  15. CELEBREX [Concomitant]
  16. ZOCOR [Concomitant]
  17. FOLIC ACID [Concomitant]

REACTIONS (13)
  - ANAEMIA MACROCYTIC [None]
  - ASTHENIA [None]
  - BACK DISORDER [None]
  - BLOOD ALKALINE PHOSPHATASE INCREASED [None]
  - CONDITION AGGRAVATED [None]
  - HAEMOLYTIC ANAEMIA [None]
  - LIMB DISCOMFORT [None]
  - MUSCLE SPASMS [None]
  - MUSCULOSKELETAL CHEST PAIN [None]
  - PHARMACEUTICAL PRODUCT COMPLAINT [None]
  - PYURIA [None]
  - SENSORY DISTURBANCE [None]
  - URINARY TRACT INFECTION [None]
